FAERS Safety Report 8363584-7 (Version None)
Quarter: 2012Q2

REPORT INFORMATION
  Report Type: 
  Country: None (occurrence: None)
  Receive Date: 20120516
  Receipt Date: 20120514
  Transmission Date: 20120825
  Serious: Yes (Other)
  Sender: FDA-Public Use
  Company Number: PHEH2011US00484

PATIENT
  Sex: Female

DRUGS (1)
  1. ZOMETA [Suspect]
     Indication: BREAST CANCER METASTATIC
     Route: 042

REACTIONS (10)
  - INFECTION [None]
  - ANXIETY [None]
  - INJURY [None]
  - TOOTHACHE [None]
  - LOOSE TOOTH [None]
  - PAIN [None]
  - DEFORMITY [None]
  - EXPOSED BONE IN JAW [None]
  - OSTEONECROSIS OF JAW [None]
  - PHYSICAL DISABILITY [None]
